FAERS Safety Report 14963576 (Version 1)
Quarter: 2018Q2

REPORT INFORMATION
  Report Type: Spontaneous
  Country: SK (occurrence: SK)
  Receive Date: 20180601
  Receipt Date: 20180601
  Transmission Date: 20180711
  Serious: Yes (Death)
  Sender: FDA-Public Use
  Company Number: SK-PFIZER INC-2018162543

PATIENT
  Age: 84 Year
  Sex: Male

DRUGS (1)
  1. XALKORI [Suspect]
     Active Substance: CRIZOTINIB
     Indication: NON-SMALL CELL LUNG CANCER
     Dosage: 250 MG, 2X/DAY (ON TREATMENT FOR 3 WEEKS)
     Route: 048

REACTIONS (3)
  - Headache [Not Recovered/Not Resolved]
  - Neoplasm progression [Fatal]
  - Pleural effusion [Fatal]

NARRATIVE: CASE EVENT DATE: 20180416
